FAERS Safety Report 23073110 (Version 2)
Quarter: 2024Q3

REPORT INFORMATION
  Report Type: Report from Study
  Country: ZA (occurrence: ZA)
  Receive Date: 20231017
  Receipt Date: 20240904
  Transmission Date: 20241016
  Serious: Yes (Other)
  Sender: ROCHE
  Company Number: ZA-ROCHE-2998867

PATIENT
  Age: 31 Year
  Sex: Female

DRUGS (2)
  1. OCREVUS [Suspect]
     Active Substance: OCRELIZUMAB
     Indication: Relapsing multiple sclerosis
     Dosage: THEN 600MG EVERY SIX MONTHS
     Route: 041
     Dates: start: 20210715
  2. OCREVUS [Suspect]
     Active Substance: OCRELIZUMAB
     Indication: Primary progressive multiple sclerosis
     Dosage: THEN 600MG EVERY SIX MONTHS
     Route: 041
     Dates: start: 20210715

REACTIONS (18)
  - Multiple sclerosis [Unknown]
  - Central nervous system lesion [Unknown]
  - Spinal cord compression [Unknown]
  - Spinal cord disorder [Unknown]
  - Spinal stenosis [Unknown]
  - Intervertebral disc protrusion [Unknown]
  - Nasal septum deviation [Unknown]
  - Nasal congestion [Unknown]
  - Spinal osteoarthritis [Unknown]
  - Demyelination [Unknown]
  - Ventricular enlargement [Unknown]
  - Benign enlargement of the subarachnoid spaces [Unknown]
  - Spinal flattening [Unknown]
  - Vertebral lesion [Unknown]
  - Magnetic resonance imaging abnormal [Unknown]
  - Nasal septum deviation [Unknown]
  - Intervertebral disc protrusion [Unknown]
  - Multiple sclerosis [Unknown]
